FAERS Safety Report 7258374-2 (Version None)
Quarter: 2011Q1

REPORT INFORMATION
  Report Type: 
  Country: None (occurrence: None)
  Receive Date: 20110129
  Receipt Date: 20100712
  Transmission Date: 20110831
  Serious: No
  Sender: FDA-Public Use
  Company Number: US-ABBOTT-10P-163-0652665-00

PATIENT
  Age: 57 Year
  Sex: Female

DRUGS (17)
  1. HUMIRA [Suspect]
  2. MULTI-VITAMIN [Concomitant]
     Indication: PRODUCT USED FOR UNKNOWN INDICATION
  3. HUMIRA [Suspect]
     Indication: PRODUCT USED FOR UNKNOWN INDICATION
     Dates: start: 20100619, end: 20100619
  4. TYLENOL PM [Concomitant]
     Indication: SLEEP DISORDER THERAPY
  5. HUMIRA [Suspect]
     Dates: start: 20100611, end: 20100611
  6. MELATONIN [Concomitant]
     Indication: SLEEP DISORDER THERAPY
     Dosage: AT BEDTIME
  7. STEROID [Concomitant]
     Indication: PYODERMA
  8. DEXAMETHASONE [Concomitant]
     Dosage: DAILY DOSE: 2MG
     Dates: start: 20100623
  9. HYDROCHLOROTHIAZIDE [Concomitant]
     Indication: DIURETIC THERAPY
  10. TYLENOL PM [Concomitant]
     Indication: DISCOMFORT
  11. DAPSONE [Concomitant]
     Indication: PRODUCT USED FOR UNKNOWN INDICATION
  12. ANTIBIOTIC [Concomitant]
     Indication: PYODERMA
  13. ANTIBIOTIC [Concomitant]
     Indication: ACUTE FEBRILE NEUTROPHILIC DERMATOSIS
  14. DEXAMETHASONE [Concomitant]
     Indication: PRODUCT USED FOR UNKNOWN INDICATION
  15. STEROID [Concomitant]
     Indication: ACUTE FEBRILE NEUTROPHILIC DERMATOSIS
  16. PRAVASTATIN SODIUM [Concomitant]
     Indication: BLOOD CHOLESTEROL
     Dosage: AT BEDTIME
  17. HYDROCHLOROTHIAZIDE [Concomitant]
     Indication: BLOOD PRESSURE

REACTIONS (1)
  - CONTUSION [None]
